FAERS Safety Report 7136094-2 (Version None)
Quarter: 2010Q4

REPORT INFORMATION
  Report Type: 
  Country: None (occurrence: None)
  Receive Date: 20101204
  Receipt Date: 20101115
  Transmission Date: 20110411
  Serious: Yes (Life-Threatening, Hospitalization, Other)
  Sender: FDA-Public Use
  Company Number: US-BAYER-201016262NA

PATIENT

DRUGS (1)
  1. YASMIN [Suspect]
     Indication: CONTRACEPTION
     Route: 048
     Dates: start: 20040101, end: 20061101

REACTIONS (13)
  - ACTIVATED PROTEIN C RESISTANCE TEST POSITIVE [None]
  - ANTINUCLEAR ANTIBODY POSITIVE [None]
  - FACTOR V LEIDEN MUTATION [None]
  - FATIGUE [None]
  - IMMOBILISATION PROLONGED [None]
  - LETHARGY [None]
  - LYMPHADENOPATHY [None]
  - PRESYNCOPE [None]
  - PULMONARY EMBOLISM [None]
  - PULMONARY HYPERTENSION [None]
  - RESPIRATORY ARREST [None]
  - THROMBOSIS [None]
  - VENOUS THROMBOSIS [None]
